FAERS Safety Report 8294400-X (Version None)
Quarter: 2012Q2

REPORT INFORMATION
  Report Type: 
  Country: None (occurrence: None)
  Receive Date: 20120418
  Receipt Date: 20120406
  Transmission Date: 20120825
  Serious: Yes (Hospitalization, Other)
  Sender: FDA-Public Use
  Company Number: JP-PFIZER INC-2012049780

PATIENT
  Age: 58 Year
  Sex: Male
  Weight: 71 kg

DRUGS (8)
  1. ASPIRIN [Concomitant]
     Dosage: UNK
     Dates: start: 20050101
  2. GRAMALIL [Concomitant]
     Dosage: 25 MG, UNK
     Dates: start: 20050101
  3. WARFARIN [Concomitant]
     Indication: ANGINA UNSTABLE
     Dosage: UNK
     Dates: start: 20050101
  4. LIPITOR [Suspect]
     Indication: ANGINA UNSTABLE
     Dosage: 10 MG, UID/QD
     Route: 048
     Dates: start: 20060726, end: 20120118
  5. LASIX [Concomitant]
     Indication: ANGINA UNSTABLE
     Dosage: UNK
     Dates: start: 20050301
  6. DIOVAN [Concomitant]
     Indication: ANGINA UNSTABLE
     Dosage: UNK
     Dates: start: 20050420
  7. ROXATIDINE ACETATE HCL [Concomitant]
     Dosage: UNK
     Dates: start: 20050101
  8. ISOSORBIDE MONONITRATE [Concomitant]
     Indication: ANGINA UNSTABLE
     Dosage: UNK
     Dates: start: 20050101

REACTIONS (6)
  - RHABDOMYOLYSIS [None]
  - HYPOTHYROIDISM [None]
  - RENAL IMPAIRMENT [None]
  - SPINAL OSTEOARTHRITIS [None]
  - HYPOAESTHESIA [None]
  - HEPATIC ENZYME INCREASED [None]
